FAERS Safety Report 13265444 (Version 1)
Quarter: 2017Q1

REPORT INFORMATION
  Report Type: Spontaneous
  Country: FR (occurrence: FR)
  Receive Date: 20170223
  Receipt Date: 20170223
  Transmission Date: 20170428
  Serious: Yes (Other)
  Sender: FDA-Public Use
  Company Number: FR-JNJFOC-20170222227

PATIENT
  Age: 41 Year
  Sex: Male

DRUGS (5)
  1. DIAZEPAM. [Suspect]
     Active Substance: DIAZEPAM
     Indication: ANXIETY DISORDER
     Route: 065
  2. HYDROXYZINE [Suspect]
     Active Substance: HYDROXYZINE HYDROCHLORIDE
     Indication: ANXIETY DISORDER
     Route: 065
  3. TADALAFIL [Suspect]
     Active Substance: TADALAFIL
     Indication: ERECTILE DYSFUNCTION
     Route: 065
  4. TRAMADOL HYDROCHLORIDE. [Suspect]
     Active Substance: TRAMADOL HYDROCHLORIDE
     Indication: PRODUCT USED FOR UNKNOWN INDICATION
     Route: 065
  5. LOXAPINE. [Suspect]
     Active Substance: LOXAPINE
     Indication: ANXIETY DISORDER
     Route: 065

REACTIONS (1)
  - Priapism [Recovered/Resolved]
